FAERS Safety Report 13887697 (Version 1)
Quarter: 2017Q3

REPORT INFORMATION
  Report Type: Spontaneous
  Country: US (occurrence: US)
  Receive Date: 20170821
  Receipt Date: 20170821
  Transmission Date: 20171127
  Serious: Yes (Life-Threatening, Hospitalization)
  Sender: FDA-Public Use
  Company Number: US-ROCHE-1102251

PATIENT
  Age: 55 Year
  Sex: Female
  Weight: 66.28 kg

DRUGS (9)
  1. POTASSIUM BICARBONATE. [Concomitant]
     Active Substance: POTASSIUM BICARBONATE
     Route: 065
  2. CALCIUM CITRATE PLUS (UNK INGREDIENTS) [Concomitant]
     Dosage: 600MG/325 MG
     Route: 065
  3. ZOMIG [Concomitant]
     Active Substance: ZOLMITRIPTAN
     Route: 065
  4. OXYCODONE/ACETAMINOPHEN [Concomitant]
     Active Substance: ACETAMINOPHEN\OXYCODONE HYDROCHLORIDE
     Dosage: 5-325 MG
     Route: 048
  5. LYRICA [Concomitant]
     Active Substance: PREGABALIN
     Route: 065
  6. SUMATRIPTAN SUCCINATE. [Concomitant]
     Active Substance: SUMATRIPTAN SUCCINATE
     Route: 048
  7. MAXALT [Concomitant]
     Active Substance: RIZATRIPTAN BENZOATE
  8. RELPAX [Concomitant]
     Active Substance: ELETRIPTAN HYDROBROMIDE
     Route: 048
  9. ACTEMRA [Suspect]
     Active Substance: TOCILIZUMAB
     Indication: RHEUMATOID ARTHRITIS
     Dosage: 500 MG AT TIME OF EVENT.
     Route: 065
     Dates: start: 201205, end: 201207

REACTIONS (1)
  - Gastrointestinal perforation [Recovered/Resolved]

NARRATIVE: CASE EVENT DATE: 20120720
